FAERS Safety Report 4394853-3 (Version None)
Quarter: 2004Q3

REPORT INFORMATION
  Report Type: 
  Country: None (occurrence: None)
  Receive Date: 20040707
  Receipt Date: 20040623
  Transmission Date: 20050211
  Serious: Yes (Hospitalization)
  Sender: FDA-Public Use
  Company Number: 04P-056-0264915-00

PATIENT
  Age: 43 Year
  Sex: Male

DRUGS (4)
  1. AKINETON [Suspect]
     Indication: DRUG USE FOR UNKNOWN INDICATION
     Dosage: 1 IN 1 D; PER ORAL
     Route: 048
     Dates: start: 20040517, end: 20040526
  2. OLANZAPINE [Suspect]
     Indication: DRUG USE FOR UNKNOWN INDICATION
     Dosage: 1 IN 1 D; PER ORAL
     Route: 048
     Dates: start: 20040517, end: 20040526
  3. CYAMEMAZINE [Suspect]
     Indication: DRUG USE FOR UNKNOWN INDICATION
     Dosage: 1 IN 1 D; PER ORAL
     Route: 048
     Dates: start: 20040517, end: 20040610
  4. AMISULPRIDE [Concomitant]

REACTIONS (2)
  - ASPARTATE AMINOTRANSFERASE INCREASED [None]
  - PYREXIA [None]
